FAERS Safety Report 17657967 (Version 1)
Quarter: 2020Q2

REPORT INFORMATION
  Report Type: Report from Study
  Country: CN (occurrence: CN)
  Receive Date: 20200411
  Receipt Date: 20200411
  Transmission Date: 20200713
  Serious: Yes (Death, Hospitalization, Other)
  Sender: FDA-Public Use
  Company Number: CN-ROCHE-2031952

PATIENT
  Age: 66 Year
  Sex: Male
  Weight: 46 kg

DRUGS (1)
  1. AVASTIN [Suspect]
     Active Substance: BEVACIZUMAB
     Indication: NON-SMALL CELL LUNG CANCER
     Route: 041
     Dates: start: 20170518

REACTIONS (6)
  - Pyrexia [Unknown]
  - Pneumonia [Unknown]
  - Fall [Unknown]
  - Epistaxis [Unknown]
  - Feeding disorder [Fatal]
  - Cough [Unknown]

NARRATIVE: CASE EVENT DATE: 20200322
